FAERS Safety Report 5448417-0 (Version None)
Quarter: 2007Q3

REPORT INFORMATION
  Report Type: 
  Country: None (occurrence: None)
  Receive Date: 20070911
  Receipt Date: 20070904
  Transmission Date: 20080115
  Serious: Yes (Life-Threatening, Hospitalization, Other)
  Sender: FDA-Public Use
  Company Number: US-ELI_LILLY_AND_COMPANY-US200709000259

PATIENT
  Sex: Female

DRUGS (3)
  1. ZYPREXA [Suspect]
     Indication: POST-TRAUMATIC STRESS DISORDER
     Dosage: UNK MG, UNK
     Dates: start: 19991001, end: 20010201
  2. THYROID THERAPY [Concomitant]
  3. FLUOXETINE HYDROCHLORIDE [Concomitant]

REACTIONS (4)
  - BLOOD DISORDER [None]
  - CARDIAC ARREST [None]
  - MALAISE [None]
  - NEUROLEPTIC MALIGNANT SYNDROME [None]
